FAERS Safety Report 11106440 (Version 1)
Quarter: 2015Q2

REPORT INFORMATION
  Report Type: Spontaneous
  Country: FR (occurrence: FR)
  Receive Date: 20150512
  Receipt Date: 20150512
  Transmission Date: 20150821
  Serious: Yes (Hospitalization, Other)
  Sender: FDA-Public Use
  Company Number: FR-SA-2015SA061918

PATIENT
  Age: 83 Year
  Sex: Male

DRUGS (7)
  1. APROVEL [Suspect]
     Active Substance: IRBESARTAN
     Route: 048
     Dates: start: 20150206, end: 20150225
  2. LASILIX [Suspect]
     Active Substance: FUROSEMIDE
     Dosage: SCORED TABLET
     Route: 048
  3. APROVEL [Suspect]
     Active Substance: IRBESARTAN
     Route: 048
  4. AMLOR [Suspect]
     Active Substance: AMLODIPINE BESYLATE
     Route: 048
     Dates: start: 2013, end: 20150225
  5. LASILIX [Suspect]
     Active Substance: FUROSEMIDE
     Dosage: SCORED TABLET
     Route: 048
     Dates: start: 20150212, end: 20150225
  6. ELIQUIS [Concomitant]
     Active Substance: APIXABAN
     Route: 048
     Dates: start: 20141107
  7. ADENURIC [Concomitant]
     Active Substance: FEBUXOSTAT
     Indication: GOUT
     Route: 048
     Dates: start: 2013, end: 20150216

REACTIONS (5)
  - Orthostatic hypotension [Recovered/Resolved]
  - Malaise [Unknown]
  - Weight decreased [Unknown]
  - Endocarditis [Unknown]
  - Fall [Unknown]

NARRATIVE: CASE EVENT DATE: 20150214
